FAERS Safety Report 5090938-7 (Version None)
Quarter: 2006Q3

REPORT INFORMATION
  Report Type: 
  Country: None (occurrence: None)
  Receive Date: 20060823
  Receipt Date: 20060816
  Transmission Date: 20061208
  Serious: Yes (Death, Hospitalization, Other)
  Sender: FDA-Public Use
  Company Number: CLOF-10237

PATIENT
  Age: 72 Year
  Sex: Female

DRUGS (9)
  1. CLOFARABINE [Suspect]
     Indication: ACUTE LYMPHOCYTIC LEUKAEMIA
     Dosage: 40 MG/M2 QD X 3 IV
     Route: 042
     Dates: start: 20060428, end: 20060430
  2. CYCLOPHOSPHAMIDE [Suspect]
     Indication: ACUTE LYMPHOCYTIC LEUKAEMIA
     Dosage: 200 MG/M2 Q12HR IV
     Route: 042
     Dates: start: 20060427, end: 20060501
  3. CYCLOPHOSPHAMIDE [Suspect]
     Indication: ACUTE LYMPHOCYTIC LEUKAEMIA
     Dosage: 300 MG/M2 QD X 3 IV
     Route: 042
     Dates: start: 20060501, end: 20060501
  4. BACTRIM [Suspect]
  5. VALTREX [Suspect]
  6. ZOSYN [Suspect]
  7. LEVOTHYROXINE SODIUM [Concomitant]
  8. MAGNESIUM [Concomitant]
  9. PIPERACILLIN [Concomitant]

REACTIONS (9)
  - DIARRHOEA [None]
  - HAEMOLYTIC URAEMIC SYNDROME [None]
  - INFECTION [None]
  - MALNUTRITION [None]
  - MULTI-ORGAN FAILURE [None]
  - NEPHRITIS INTERSTITIAL [None]
  - NEPHROPATHY TOXIC [None]
  - RECTAL HAEMORRHAGE [None]
  - RENAL FAILURE ACUTE [None]
